FAERS Safety Report 24459114 (Version 1)
Quarter: 2024Q4

REPORT INFORMATION
  Report Type: Spontaneous
  Country: US (occurrence: None)
  Receive Date: 20241017
  Receipt Date: 20241017
  Transmission Date: 20250115
  Serious: Yes (Hospitalization)
  Sender: Public
  Company Number: None

PATIENT
  Age: 47 Year
  Sex: Male

DRUGS (1)
  1. ADEMPAS [Suspect]
     Active Substance: RIOCIGUAT
     Indication: Pulmonary hypertension
     Dosage: OTHER QUANTITY : 2.5 MG;?FREQUENCY : 3 TIMES A DAY;?
     Route: 048
     Dates: start: 20240628, end: 20241001

REACTIONS (2)
  - Endarterectomy [None]
  - Therapy cessation [None]

NARRATIVE: CASE EVENT DATE: 20240930
